FAERS Safety Report 9665076 (Version 1)
Quarter: 2013Q4

REPORT INFORMATION
  Report Type: Spontaneous
  Country: FR (occurrence: FR)
  Receive Date: 20131101
  Receipt Date: 20131101
  Transmission Date: 20140711
  Serious: Yes (Hospitalization)
  Sender: FDA-Public Use
  Company Number: FR-ABBVIE-13P-056-1165120-00

PATIENT
  Age: 1 Day
  Sex: 0

DRUGS (2)
  1. DEPAKINE [Suspect]
     Indication: MATERNAL EXPOSURE TIMING UNSPECIFIED
     Route: 064
  2. LEVOTHYROXINE [Suspect]
     Indication: MATERNAL EXPOSURE TIMING UNSPECIFIED
     Route: 064

REACTIONS (15)
  - Cardiac failure [Unknown]
  - Congenital pulmonary hypertension [Unknown]
  - Renal hypertrophy [Not Recovered/Not Resolved]
  - Renal dysplasia [Not Recovered/Not Resolved]
  - Congenital cystic kidney disease [Not Recovered/Not Resolved]
  - Congenital hydronephrosis [Unknown]
  - Congenital pyelocaliectasis [Unknown]
  - Aorta hypoplasia [Recovering/Resolving]
  - Congenital aortic stenosis [Recovering/Resolving]
  - Congenital aortic anomaly [Recovering/Resolving]
  - Ventricular septal defect [Recovering/Resolving]
  - Autism [Unknown]
  - Psychomotor skills impaired [Unknown]
  - Bicuspid aortic valve [Unknown]
  - Foetal exposure during pregnancy [Unknown]
